FAERS Safety Report 6032268-2 (Version None)
Quarter: 2008Q4

REPORT INFORMATION
  Report Type: 
  Country: None (occurrence: None)
  Receive Date: 20081224
  Receipt Date: 20081218
  Transmission Date: 20090506
  Serious: Yes (Hospitalization)
  Sender: FDA-Public Use
  Company Number: 200814470

PATIENT
  Age: 47 Year
  Sex: Female

DRUGS (12)
  1. VIVAGLOBIN [Suspect]
     Indication: IMMUNODEFICIENCY
     Dosage: SC
     Route: 058
     Dates: start: 20081201
  2. MOBIC [Concomitant]
  3. PROZAC [Concomitant]
  4. MUCINEX [Concomitant]
  5. POTASSIUM CHLORIDE [Concomitant]
  6. CALTRATE + D [Concomitant]
  7. XANAX [Concomitant]
  8. FLEXERIL [Concomitant]
  9. ZOCOR [Concomitant]
  10. HYDROCODONE BITARTRATE [Concomitant]
  11. FENTANYL CITRATE [Concomitant]
  12. ANTIBIOTIC [Concomitant]

REACTIONS (7)
  - CHEST DISCOMFORT [None]
  - CHILLS [None]
  - DYSPNOEA [None]
  - FEELING COLD [None]
  - INFUSION RELATED REACTION [None]
  - PULMONARY OEDEMA [None]
  - PYREXIA [None]
